FAERS Safety Report 5122035-6 (Version None)
Quarter: 2006Q4

REPORT INFORMATION
  Report Type: 
  Country: None (occurrence: None)
  Receive Date: 20061006
  Receipt Date: 20060616
  Transmission Date: 20070319
  Serious: Yes (Other)
  Sender: FDA-Public Use
  Company Number: US-SANOFI-SYNTHELABO-A03200604442

PATIENT
  Sex: Female
  Weight: 55.3 kg

DRUGS (4)
  1. AMBIEN [Suspect]
     Indication: EPILEPSY
     Route: 048
     Dates: start: 20020501, end: 20050401
  2. AMBIEN [Suspect]
     Indication: COMPLEX PARTIAL SEIZURES
     Route: 048
     Dates: start: 20020501, end: 20050401
  3. AMBIEN [Suspect]
     Route: 048
     Dates: start: 20050401
  4. AMBIEN [Suspect]
     Route: 048
     Dates: start: 20050401

REACTIONS (7)
  - ABDOMINAL PAIN [None]
  - GASTRITIS [None]
  - GASTROINTESTINAL TUBE INSERTION [None]
  - IMPAIRED GASTRIC EMPTYING [None]
  - THERAPEUTIC RESPONSE UNEXPECTED [None]
  - VOMITING [None]
  - WEIGHT DECREASED [None]
